FAERS Safety Report 4962134-2 (Version None)
Quarter: 2006Q2

REPORT INFORMATION
  Report Type: 
  Country: None (occurrence: None)
  Receive Date: 20060404
  Receipt Date: 20060116
  Transmission Date: 20061013
  Serious: Yes (Death, Hospitalization, Other)
  Sender: FDA-Public Use
  Company Number: JP-BRISTOL-MYERS SQUIBB COMPANY-13248380

PATIENT
  Age: 34 Year
  Sex: Female

DRUGS (5)
  1. TAXOL [Suspect]
     Indication: GASTRIC CANCER
     Route: 041
     Dates: start: 20051227, end: 20051227
  2. FURTULON [Suspect]
     Indication: GASTRIC CANCER
     Route: 048
     Dates: start: 20051227, end: 20051227
  3. GASTER [Concomitant]
     Route: 042
  4. POLARAMINE [Concomitant]
     Route: 042
  5. SOLU-MEDROL [Concomitant]
     Route: 042

REACTIONS (3)
  - MALIGNANT NEOPLASM PROGRESSION [None]
  - PANCYTOPENIA [None]
  - UPPER GASTROINTESTINAL HAEMORRHAGE [None]
